FAERS Safety Report 4354380-6 (Version None)
Quarter: 2004Q2

REPORT INFORMATION
  Report Type: 
  Country: None (occurrence: None)
  Receive Date: 20040503
  Receipt Date: 20040420
  Transmission Date: 20050107
  Serious: No
  Sender: FDA-Public Use
  Company Number: 205440

PATIENT
  Age: 51 Year
  Sex: Female
  Weight: 65.8 kg

DRUGS (9)
  1. HERCEPTIN [Suspect]
     Indication: BREAST CANCER METASTATIC
     Dosage: SEE IMAGE
     Route: 042
     Dates: start: 20030521, end: 20030521
  2. HERCEPTIN [Suspect]
     Indication: BREAST CANCER METASTATIC
     Dosage: SEE IMAGE
     Route: 042
     Dates: start: 20030528, end: 20040201
  3. NAVELBINE [Concomitant]
  4. FASLODEX (FULVESTRANT) [Concomitant]
  5. DECADRON [Concomitant]
  6. KYRIL (GRANISETRON HYDROCHLORIDE) [Concomitant]
  7. COUMADIN (WARFARIN SDOIUM) [Concomitant]
  8. HYDROCHLOROTHIAZIDE [Concomitant]
  9. PROCRIT (EPOETIN ALFA) [Concomitant]

REACTIONS (8)
  - ASPARTATE AMINOTRANSFERASE INCREASED [None]
  - BLOOD GLUCOSE INCREASED [None]
  - BLOOD LACTATE DEHYDROGENASE INCREASED [None]
  - CORNEAL ABRASION [None]
  - HAEMATOCRIT DECREASED [None]
  - KERATITIS [None]
  - MICROANGIOPATHY [None]
  - NUCLEAR MAGNETIC RESONANCE IMAGING BRAIN ABNORMAL [None]
